FAERS Safety Report 7749707-9 (Version None)
Quarter: 2011Q3

REPORT INFORMATION
  Report Type: 
  Country: None (occurrence: None)
  Receive Date: 20110914
  Receipt Date: 20110906
  Transmission Date: 20111222
  Serious: Yes (Other)
  Sender: FDA-Public Use
  Company Number: US-JNJFOC-20100804672

PATIENT
  Sex: Male

DRUGS (10)
  1. LEVAQUIN [Suspect]
     Indication: BRONCHITIS
     Route: 048
  2. PREDNISONE [Suspect]
     Indication: CHRONIC OBSTRUCTIVE PULMONARY DISEASE
     Route: 065
  3. PREDNISONE [Suspect]
     Indication: BRONCHITIS
     Route: 065
  4. CIPROFLOXACIN [Suspect]
     Indication: BRONCHITIS
     Route: 065
  5. PREDNISONE [Suspect]
     Indication: COUGH
     Route: 065
  6. LEVOFLOXACIN [Suspect]
     Indication: BRONCHITIS
     Route: 048
     Dates: start: 20030101, end: 20051230
  7. CIPROFLOXACIN [Suspect]
     Indication: PROSTATITIS
     Route: 065
  8. PREDNISONE [Suspect]
     Indication: SINUSITIS
     Route: 065
  9. AVELOX [Suspect]
     Indication: BRONCHITIS
     Route: 065
  10. CIPROFLOXACIN [Suspect]
     Indication: DIVERTICULITIS
     Route: 065

REACTIONS (4)
  - LIGAMENT RUPTURE [None]
  - MOVEMENT DISORDER [None]
  - ROTATOR CUFF SYNDROME [None]
  - TENDON RUPTURE [None]
